FAERS Safety Report 15299101 (Version 3)
Quarter: 2022Q1

REPORT INFORMATION
  Report Type: Spontaneous
  Country: ES (occurrence: ES)
  Receive Date: 20180821
  Receipt Date: 20220118
  Transmission Date: 20220423
  Serious: Yes (Disabling)
  Sender: FDA-Public Use
  Company Number: ES-ACCORD-070947

PATIENT
  Age: 52 Year
  Sex: Male

DRUGS (4)
  1. ARIPIPRAZOLE [Suspect]
     Active Substance: ARIPIPRAZOLE
     Indication: Mania
  2. QUETIAPINE FUMARATE [Suspect]
     Active Substance: QUETIAPINE FUMARATE
     Indication: Mania
     Route: 048
  3. RISPERIDONE [Suspect]
     Active Substance: RISPERIDONE
     Indication: Mania
  4. LITHIUM [Suspect]
     Active Substance: LITHIUM
     Indication: Mania

REACTIONS (5)
  - Condition aggravated [Unknown]
  - Cognitive disorder [Unknown]
  - Blunted affect [Unknown]
  - Parkinsonism [Unknown]
  - Mania [Unknown]
